FAERS Safety Report 26044517 (Version 1)
Quarter: 2025Q4

REPORT INFORMATION
  Report Type: Spontaneous
  Country: US (occurrence: US)
  Receive Date: 20251114
  Receipt Date: 20251114
  Transmission Date: 20260117
  Serious: No
  Sender: ALVOGEN
  Company Number: US-ALVOGEN-2025096477

PATIENT
  Sex: Male

DRUGS (5)
  1. TERIPARATIDE [Suspect]
     Active Substance: TERIPARATIDE
     Indication: Osteopenia
     Dosage: PREVIOUS PEN?STRENGTH: 250UG/ML
  2. TERIPARATIDE [Suspect]
     Active Substance: TERIPARATIDE
     Indication: Osteopenia
     Dosage: EXPIRATION DATE: UU-NOV-2025, TOOK 4 OR 5 DOSES?STRENGTH: 250UG/ML
     Dates: start: 2025
  3. DIGOXIN [Concomitant]
     Active Substance: DIGOXIN
     Indication: Cardiac disorder
     Dosage: 0.25 MG
  4. ELIQUIS [Concomitant]
     Active Substance: APIXABAN
     Indication: Cardiac disorder
  5. PANTOPRAZOLE [Concomitant]
     Active Substance: PANTOPRAZOLE
     Indication: Product used for unknown indication

REACTIONS (5)
  - Device malfunction [Unknown]
  - Device operational issue [Unknown]
  - Device issue [Unknown]
  - Device defective [Unknown]
  - Product contamination [Unknown]

NARRATIVE: CASE EVENT DATE: 20250301
